FAERS Safety Report 9296556 (Version 1)
Quarter: 2013Q2

REPORT INFORMATION
  Report Type: Spontaneous
  Country: BR (occurrence: BR)
  Receive Date: 20130517
  Receipt Date: 20130517
  Transmission Date: 20140414
  Serious: Yes (Hospitalization)
  Sender: FDA-Public Use
  Company Number: BR-009507513-2011SP047063

PATIENT
  Age: 27 Year
  Sex: Female
  Weight: 57 kg

DRUGS (2)
  1. MERCILON CONTI [Suspect]
     Indication: CONTRACEPTION
     Dosage: 1 DF, QD
     Route: 048
     Dates: start: 201105, end: 20110921
  2. MERCILON CONTI [Suspect]
     Dosage: 1 DF, QD
     Route: 048

REACTIONS (3)
  - Skin bacterial infection [Recovering/Resolving]
  - Pharyngitis [Unknown]
  - Drug administration error [Unknown]
